FAERS Safety Report 24743998 (Version 1)
Quarter: 2024Q4

REPORT INFORMATION
  Report Type: Spontaneous
  Country: US (occurrence: US)
  Receive Date: 20241217
  Receipt Date: 20241217
  Transmission Date: 20250114
  Serious: No
  Sender: STALLERGENES
  Company Number: US-STALCOR-2024-AER-02798

PATIENT
  Age: 10 Year
  Sex: Male
  Weight: 47 kg

DRUGS (2)
  1. CASHEW [Suspect]
     Active Substance: CASHEW
     Indication: Skin test
     Dates: start: 20240613
  2. CASHEW [Suspect]
     Active Substance: CASHEW
     Indication: Product used for unknown indication

REACTIONS (2)
  - Drug ineffective [Unknown]
  - No adverse event [Unknown]

NARRATIVE: CASE EVENT DATE: 20240613
